FAERS Safety Report 11818740 (Version 1)
Quarter: 2015Q4

REPORT INFORMATION
  Report Type: Spontaneous
  Country: US (occurrence: None)
  Receive Date: 20151209
  Receipt Date: 20151209
  Transmission Date: 20160305
  Serious: Yes (Hospitalization)
  Sender: FDA-Public Use
  Company Number: None

PATIENT
  Age: 65 Year
  Sex: Female
  Weight: 63.1 kg

DRUGS (13)
  1. ALBUTEROL. [Concomitant]
     Active Substance: ALBUTEROL
  2. LOPRESSOR [Concomitant]
     Active Substance: METOPROLOL TARTRATE
  3. APAP [Concomitant]
     Active Substance: ACETAMINOPHEN
  4. LIPITOR [Concomitant]
     Active Substance: ATORVASTATIN CALCIUM
  5. ATROVENT [Concomitant]
     Active Substance: IPRATROPIUM BROMIDE
  6. SYMBICORT [Concomitant]
     Active Substance: BUDESONIDE\FORMOTEROL FUMARATE DIHYDRATE
  7. GLUCOPHAGE [Concomitant]
     Active Substance: METFORMIN HYDROCHLORIDE
  8. HEPARIN [Suspect]
     Active Substance: HEPARIN SODIUM
     Indication: PULMONARY EMBOLISM
     Dosage: RECENT??CONTINUOUS GIT DAILY
     Route: 042
  9. CLARITIN [Concomitant]
     Active Substance: LORATADINE
  10. ULTRAM [Concomitant]
     Active Substance: TRAMADOL HYDROCHLORIDE
  11. ASA [Suspect]
     Active Substance: ASPIRIN
     Indication: CORONARY ARTERY DISEASE
     Route: 048
  12. SINGULAIR [Concomitant]
     Active Substance: MONTELUKAST SODIUM
  13. PERICOLACE [Concomitant]

REACTIONS (3)
  - Heparin-induced thrombocytopenia [None]
  - Pulmonary embolism [None]
  - Deep vein thrombosis [None]

NARRATIVE: CASE EVENT DATE: 20150611
